FAERS Safety Report 26174739 (Version 1)
Quarter: 2025Q4

REPORT INFORMATION
  Report Type: Spontaneous
  Country: EU (occurrence: EU)
  Receive Date: 20251218
  Receipt Date: 20251218
  Transmission Date: 20260119
  Serious: Yes (Other)
  Sender: ACCORD
  Company Number: EU-Accord-510496

PATIENT
  Sex: Female

DRUGS (4)
  1. BENDAMUSTINE [Suspect]
     Active Substance: BENDAMUSTINE
     Indication: Waldenstrom^s macroglobulinaemia
     Dosage: FOURTH LINE TREATMENT
     Dates: start: 2022, end: 2022
  2. RITUXIMAB [Suspect]
     Active Substance: RITUXIMAB
     Indication: Waldenstrom^s macroglobulinaemia
     Dates: start: 2022, end: 2022
  3. VELCADE [Suspect]
     Active Substance: BORTEZOMIB
     Indication: Waldenstrom^s macroglobulinaemia
     Dates: start: 2025
  4. BENDAMUSTINE [Suspect]
     Active Substance: BENDAMUSTINE
     Indication: Waldenstrom^s macroglobulinaemia
     Dosage: FIFTH LINE TREATMENT
     Dates: start: 2025, end: 2025

REACTIONS (13)
  - Arthralgia [Unknown]
  - Pyrexia [Recovered/Resolved]
  - C-reactive protein increased [Recovered/Resolved]
  - Thrombocytopenia [Unknown]
  - Neutropenia [Unknown]
  - Serum sickness [Unknown]
  - Tubulointerstitial nephritis [Unknown]
  - Acute kidney injury [Unknown]
  - Chills [Unknown]
  - Blood creatinine increased [Recovered/Resolved]
  - Hypersensitivity [Unknown]
  - Off label use [Unknown]
  - Infection [Unknown]

NARRATIVE: CASE EVENT DATE: 20220101
